FAERS Safety Report 5489985-2 (Version None)
Quarter: 2007Q4

REPORT INFORMATION
  Report Type: 
  Country: None (occurrence: None)
  Receive Date: 20071018
  Receipt Date: 20071005
  Transmission Date: 20080405
  Serious: Yes (Hospitalization)
  Sender: FDA-Public Use
  Company Number: US-ROCHE-523300

PATIENT
  Age: 55 Year
  Sex: Male
  Weight: 57 kg

DRUGS (6)
  1. CAPECITABINE [Suspect]
     Route: 048
     Dates: start: 20070913, end: 20070925
  2. CETUXIMAB [Suspect]
     Dosage: DOSE AMOUNT REPORTED AS 680 MG X 1; 425 MG
     Route: 042
     Dates: start: 20070913, end: 20070913
  3. CETUXIMAB [Suspect]
     Dosage: DOSE AMOUNT REPORTED AS 680 MG X 1; 425 MG. 2 CHEMO TREATMENTS ON 13/9/07 AND 20/9/07
     Route: 042
     Dates: start: 20070913, end: 20070920
  4. OXALIPLATIN [Suspect]
     Dosage: DATES OF USE REPORTED AS 20 SEPT 2007.
     Route: 042
     Dates: start: 20070913
  5. MORPHINE [Concomitant]
  6. MS CONTIN [Concomitant]

REACTIONS (6)
  - ABDOMINAL PAIN UPPER [None]
  - HAEMOTHORAX [None]
  - HEPATIC NEOPLASM MALIGNANT [None]
  - METASTASIS [None]
  - PLEURAL EFFUSION [None]
  - SPINDLE CELL SARCOMA [None]
